FAERS Safety Report 6111185-3 (Version None)
Quarter: 2009Q1

REPORT INFORMATION
  Report Type: 
  Country: None (occurrence: None)
  Receive Date: 20090309
  Receipt Date: 20090309
  Transmission Date: 20090719
  Serious: Yes (Life-Threatening, Hospitalization)
  Sender: FDA-Public Use
  Company Number: None

PATIENT
  Sex: Male
  Weight: 61 kg

DRUGS (13)
  1. AZATHIOPRINE SODIUM [Suspect]
     Indication: IMMUNOSUPPRESSION
     Dosage: 100MG QD PO
     Route: 048
     Dates: start: 20020118, end: 20021201
  2. AZATHIOPRINE SODIUM [Suspect]
     Indication: LUNG TRANSPLANT
     Dosage: 100MG QD PO
     Route: 048
     Dates: start: 20020118, end: 20021201
  3. ADEK (VITAMINS) [Concomitant]
  4. BACTRIM DS [Concomitant]
  5. CALCIUM [Concomitant]
  6. FLOVENT [Concomitant]
  7. HUMALOG [Concomitant]
  8. LANTUS [Concomitant]
  9. FOLIC ACID [Concomitant]
  10. ALBUTEROL [Concomitant]
  11. PRILOSEC [Concomitant]
  12. ULTRASE MT20 [Concomitant]
  13. FOSAMAX [Concomitant]

REACTIONS (2)
  - LUNG NEOPLASM [None]
  - PULMONARY THROMBOSIS [None]
